FAERS Safety Report 9985523 (Version 2)
Quarter: 2014Q2

REPORT INFORMATION
  Report Type: Spontaneous
  Country: FR (occurrence: FR)
  Receive Date: 20140307
  Receipt Date: 20140425
  Transmission Date: 20141212
  Serious: Yes (Death, Life-Threatening)
  Sender: FDA-Public Use
  Company Number: FR-TEVA-467057USA

PATIENT
  Age: 58 Year
  Sex: Male

DRUGS (16)
  1. LEVACT [Suspect]
     Indication: B-CELL LYMPHOMA
     Route: 042
     Dates: start: 20130822
  2. LEVACT [Suspect]
     Indication: B-CELL LYMPHOMA
     Route: 042
     Dates: start: 20131009
  3. LEVACT [Suspect]
     Indication: B-CELL LYMPHOMA
     Route: 042
     Dates: start: 20131010
  4. IRBESARTAN AND HYDROCHLOROTHIAZIDE [Suspect]
     Indication: HYPERTENSION
     Route: 048
     Dates: end: 20130919
  5. ORBENINE [Suspect]
     Route: 048
     Dates: start: 20130803, end: 20130916
  6. MABTHERA [Suspect]
     Indication: B-CELL LYMPHOMA
     Route: 042
     Dates: start: 20130823
  7. MABTHERA [Suspect]
     Indication: B-CELL LYMPHOMA
     Route: 042
     Dates: start: 20130825
  8. GRANOCYTE 34 [Suspect]
     Indication: NEUTROPENIA
     Route: 058
     Dates: start: 20130830, end: 20130902
  9. TRIFLUCAN [Suspect]
     Indication: ORAL CANDIDIASIS
     Route: 048
     Dates: start: 20131012
  10. ALLOPURINOL [Suspect]
     Dosage: 200 MILLIGRAM DAILY;
     Route: 048
     Dates: end: 20130917
  11. ACEBUTOLOL BIOGARAN [Suspect]
     Indication: HYPERTENSION
     Dosage: 100 MILLIGRAM DAILY;
     Route: 048
     Dates: end: 20130918
  12. ATORVASTATINE [Concomitant]
  13. ESOMEPRAZOLE BIOGARAN [Concomitant]
  14. VALACICLOVIR [Concomitant]
     Dates: start: 20130801
  15. KARDEGIC [Concomitant]
  16. INNOHEP [Concomitant]

REACTIONS (2)
  - Toxic epidermal necrolysis [Fatal]
  - Acute generalised exanthematous pustulosis [Recovering/Resolving]
